FAERS Safety Report 6834642-0 (Version None)
Quarter: 2010Q3

REPORT INFORMATION
  Report Type: 
  Country: None (occurrence: None)
  Receive Date: 20100712
  Receipt Date: 20070423
  Transmission Date: 20110219
  Serious: No
  Sender: FDA-Public Use
  Company Number: US-PFIZER INC-2007033824

PATIENT
  Sex: Male
  Weight: 90.72 kg

DRUGS (7)
  1. CHANTIX [Interacting]
     Indication: SMOKING CESSATION THERAPY
     Dates: start: 20070415, end: 20070422
  2. HYDROCODONE BITARTRATE [Suspect]
     Indication: ARTHROPATHY
  3. CYMBALTA [Concomitant]
  4. PROVIGIL [Concomitant]
  5. WARFARIN SODIUM [Concomitant]
  6. ALTACE [Concomitant]
  7. SEROQUEL [Concomitant]

REACTIONS (5)
  - DEPRESSED MOOD [None]
  - DRUG INTERACTION [None]
  - FALL [None]
  - FATIGUE [None]
  - MUSCULOSKELETAL PAIN [None]
